FAERS Safety Report 23138027 (Version 2)
Quarter: 2023Q4

REPORT INFORMATION
  Report Type: Spontaneous
  Country: US (occurrence: US)
  Receive Date: 20231102
  Receipt Date: 20231130
  Transmission Date: 20240110
  Serious: No
  Sender: FDA-Public Use
  Company Number: US-MICRO LABS LIMITED-ML2023-06086

PATIENT
  Age: 75 Year
  Sex: Female
  Weight: 58.967 kg

DRUGS (3)
  1. TRAVOPROST [Suspect]
     Active Substance: TRAVOPROST
     Indication: Glaucoma
     Dosage: ONE DROP IN EACH EYE ONCE A DAY
     Route: 047
  2. DORZOLAMIDE HYDROCHLORIDE. [Concomitant]
     Indication: Glaucoma
     Route: 047
  3. REFRESH CLASSIC [Concomitant]
     Active Substance: POLYVINYL ALCOHOL\POVIDONE
     Indication: Product used for unknown indication

REACTIONS (7)
  - Trichiasis [Not Recovered/Not Resolved]
  - Product dose omission issue [Unknown]
  - Product container issue [Unknown]
  - Condition aggravated [Unknown]
  - Eyelash changes [Unknown]
  - Eyelash thickening [Not Recovered/Not Resolved]
  - Injury corneal [Unknown]
